FAERS Safety Report 10896186 (Version 1)
Quarter: 2015Q1

REPORT INFORMATION
  Report Type: Spontaneous
  Country: FR (occurrence: FR)
  Receive Date: 20150309
  Receipt Date: 20150309
  Transmission Date: 20150721
  Serious: Yes (Other)
  Sender: FDA-Public Use
  Company Number: FR-009507513-1503FRA002264

PATIENT
  Age: 58 Year
  Sex: Male

DRUGS (2)
  1. ESIDREX [Concomitant]
     Active Substance: HYDROCHLOROTHIAZIDE
     Route: 048
  2. JANUVIA [Suspect]
     Active Substance: SITAGLIPTIN PHOSPHATE
     Dosage: UNK
     Route: 048
     Dates: start: 201407, end: 201407

REACTIONS (1)
  - Porphyria non-acute [Recovered/Resolved]

NARRATIVE: CASE EVENT DATE: 201407
